FAERS Safety Report 17095976 (Version 4)
Quarter: 2020Q2

REPORT INFORMATION
  Report Type: Report from Study
  Country: None (occurrence: CO)
  Receive Date: 20191202
  Receipt Date: 20200506
  Transmission Date: 20200713
  Serious: Yes (Other)
  Sender: FDA-Public Use
  Company Number: CO-ABBVIE-19K-036-3176669-00

PATIENT
  Age: 37 Year
  Sex: Male
  Weight: 132 kg

DRUGS (1)
  1. HUMIRA [Suspect]
     Active Substance: ADALIMUMAB
     Indication: HIDRADENITIS
     Route: 058
     Dates: start: 20180427

REACTIONS (14)
  - Purulence [Recovered/Resolved]
  - Hidradenitis [Unknown]
  - Pyrexia [Recovered/Resolved]
  - Axillary mass [Recovered/Resolved]
  - Malaise [Recovered/Resolved]
  - Pruritus [Recovered/Resolved]
  - Pyrexia [Unknown]
  - Axillary pain [Recovered/Resolved]
  - Axillary pain [Unknown]
  - Hidradenitis [Unknown]
  - Drug ineffective [Unknown]
  - Axillary mass [Unknown]
  - Inflammation [Recovered/Resolved]
  - Hyperhidrosis [Recovered/Resolved]

NARRATIVE: CASE EVENT DATE: 20191119
